FAERS Safety Report 8293427-1 (Version None)
Quarter: 2012Q2

REPORT INFORMATION
  Report Type: 
  Country: None (occurrence: None)
  Receive Date: 20120417
  Receipt Date: 20110906
  Transmission Date: 20120825
  Serious: No
  Sender: FDA-Public Use
  Company Number: US-ASTRAZENECA-2011SE53430

PATIENT
  Age: 70 Year
  Sex: Female
  Weight: 70.3 kg

DRUGS (2)
  1. NEXIUM [Suspect]
     Indication: HIATUS HERNIA
     Dosage: TWO TIMES A DAY
     Route: 048
     Dates: start: 19910101
  2. ANIVERS [Concomitant]
     Indication: MENIERE'S DISEASE
     Dates: start: 19710101

REACTIONS (2)
  - BONE DENSITY DECREASED [None]
  - OFF LABEL USE [None]
